FAERS Safety Report 9266487 (Version 3)
Quarter: 2013Q2

REPORT INFORMATION
  Report Type: Spontaneous
  Country: GB (occurrence: GB)
  Receive Date: 20130502
  Receipt Date: 20130529
  Transmission Date: 20140414
  Serious: Yes (Other)
  Sender: FDA-Public Use
  Company Number: GB-ROCHE-1220406

PATIENT
  Sex: 0

DRUGS (2)
  1. XOLAIR [Suspect]
     Indication: ASTHMA
     Dosage: PRE FILLED SYRINGE
     Route: 065
     Dates: start: 20130308
  2. XOLAIR [Suspect]
     Dosage: 4 PFS
     Route: 065
     Dates: start: 20130405

REACTIONS (1)
  - Asthma [Not Recovered/Not Resolved]
